FAERS Safety Report 21945542 (Version 1)
Quarter: 2023Q1

REPORT INFORMATION
  Report Type: Spontaneous
  Country: JP (occurrence: JP)
  Receive Date: 20230202
  Receipt Date: 20230202
  Transmission Date: 20230417
  Serious: Yes (Other)
  Sender: FDA-Public Use
  Company Number: JP-GUERBETG_JAPAN-JP-20230008

PATIENT
  Age: 46 Year
  Sex: Female

DRUGS (1)
  1. LIPIODOL [Suspect]
     Active Substance: ETHIODIZED OIL
     Indication: Therapeutic embolisation

REACTIONS (3)
  - Lymphoedema [Recovered/Resolved]
  - Cellulitis [Recovered/Resolved]
  - Product use in unapproved indication [Recovered/Resolved]
